FAERS Safety Report 8299452-9 (Version None)
Quarter: 2012Q2

REPORT INFORMATION
  Report Type: 
  Country: None (occurrence: None)
  Receive Date: 20120419
  Receipt Date: 20120411
  Transmission Date: 20120825
  Serious: No
  Sender: FDA-Public Use
  Company Number: US-BAYER-2012-035983

PATIENT

DRUGS (2)
  1. ALEVE (CAPLET) [Suspect]
     Dosage: UNK
     Route: 048
     Dates: start: 20120411
  2. ASPIRIN [Suspect]
     Dosage: UNK
     Route: 048
     Dates: start: 20120411

REACTIONS (2)
  - PAIN [None]
  - SWELLING FACE [None]
